FAERS Safety Report 7265116-3 (Version None)
Quarter: 2011Q1

REPORT INFORMATION
  Report Type: 
  Country: None (occurrence: None)
  Receive Date: 20110131
  Receipt Date: 20110121
  Transmission Date: 20110831
  Serious: Yes (Hospitalization, Other)
  Sender: FDA-Public Use
  Company Number: US-NOVOPROD-312538

PATIENT
  Age: 51 Year
  Sex: Female

DRUGS (17)
  1. CYMBALTA [Concomitant]
     Indication: NEURALGIA
     Dosage: 60 MG, 1PM
  2. MELOXICAM [Concomitant]
     Indication: PRODUCT USED FOR UNKNOWN INDICATION
     Dosage: 15 MG, QD
  3. METOPROLOL [Concomitant]
     Indication: BLOOD PRESSURE
     Dosage: 50 MG, 2AM - 1PM
  4. NEXIUM [Concomitant]
     Indication: GASTROOESOPHAGEAL REFLUX DISEASE
     Dosage: 40 MG, 1AM
  5. LYRICA [Concomitant]
     Indication: FIBROMYALGIA
     Dosage: TID, AS NEEDED
  6. CRESTOR [Concomitant]
     Indication: BLOOD CHOLESTEROL
     Dosage: 20 MG, (2PM)
  7. HYDROCODONE [Concomitant]
     Indication: PAIN
     Dosage: 2 UNK, QD
  8. VICTOZA [Suspect]
     Indication: TYPE 2 DIABETES MELLITUS
     Dosage: UNKNOWN
     Route: 058
     Dates: start: 20100713, end: 20100729
  9. METFORMIN [Concomitant]
     Indication: TYPE 2 DIABETES MELLITUS
     Dosage: 2 AM - 2 PM
     Route: 048
  10. NSAID''S [Concomitant]
     Indication: PRODUCT USED FOR UNKNOWN INDICATION
  11. ACTOS [Concomitant]
     Indication: TYPE 2 DIABETES MELLITUS
     Dosage: 15 MG, 1 AM
  12. HYDROCHLOROTHIAZIDE [Concomitant]
     Indication: ANXIETY
     Dosage: 25 MG, QD
  13. LEVOTHYROXINE SODIUM [Concomitant]
     Indication: THYROID DISORDER
     Dosage: 175 MG, QD
  14. ASPIRIN [Concomitant]
     Indication: PRODUCT USED FOR UNKNOWN INDICATION
     Dosage: 81 MG, QD
  15. LOVAZA [Concomitant]
     Indication: BLOOD CHOLESTEROL
     Dosage: 4 AM
  16. ALPRAZOLAM [Concomitant]
     Indication: ANXIETY
     Dosage: .5 MG, (EVERY 8 HOURS AS NEEDED)
  17. NEXIUM [Concomitant]
     Indication: ABDOMINAL DISCOMFORT

REACTIONS (4)
  - RENAL FAILURE ACUTE [None]
  - TUBULOINTERSTITIAL NEPHRITIS [None]
  - RENAL CANCER [None]
  - PANCREATITIS ACUTE [None]
